FAERS Safety Report 8849785 (Version 3)
Quarter: 2012Q4

REPORT INFORMATION
  Report Type: 
  Country: AU (occurrence: AU)
  Receive Date: 20121019
  Receipt Date: 20121113
  Transmission Date: 20130627
  Serious: Yes (Hospitalization)
  Sender: FDA-Public Use
  Company Number: PHHY2012AU092867

PATIENT
  Sex: Female
  Weight: 121 kg

DRUGS (2)
  1. CLOZARIL [Suspect]
     Dosage: 375 mg
     Route: 048
     Dates: start: 20051025, end: 20120912
  2. CLOZARIL [Suspect]
     Route: 048
     Dates: start: 20121025

REACTIONS (2)
  - Psychotic disorder [Unknown]
  - Aggression [Unknown]
